FAERS Safety Report 9981195 (Version 1)
Quarter: 2014Q1

REPORT INFORMATION
  Report Type: Spontaneous
  Country: GB (occurrence: None)
  Receive Date: 20140305
  Receipt Date: 20140305
  Transmission Date: 20141002
  Serious: Yes (Life-Threatening, Hospitalization, Disabling)
  Sender: FDA-Public Use
  Company Number: GB-ALSI-201400024

PATIENT
  Age: 77 Year
  Sex: Male
  Weight: 150 kg

DRUGS (6)
  1. MEDICAL AIR [Suspect]
     Indication: PRODUCT USED FOR UNKNOWN INDICATION
     Dates: start: 20140212
  2. GLICLAZIDE [Concomitant]
  3. IPRATROPIUM BROMIDE [Concomitant]
  4. MORPHINE SULFATE [Concomitant]
  5. PARACETAMOL [Concomitant]
  6. ASPIRIN [Concomitant]

REACTIONS (1)
  - Anaphylactic reaction [None]
